FAERS Safety Report 6637845-3 (Version None)
Quarter: 2010Q1

REPORT INFORMATION
  Report Type: 
  Country: None (occurrence: None)
  Receive Date: 20100317
  Receipt Date: 20100304
  Transmission Date: 20100710
  Serious: Yes (Hospitalization)
  Sender: FDA-Public Use
  Company Number: PHEH2010US02884

PATIENT
  Sex: Female

DRUGS (12)
  1. EXJADE [Suspect]
     Dosage: 2500 MG, QD
     Route: 048
  2. ALLOPURINOL [Concomitant]
     Dosage: 300 MG, QD
     Route: 048
  3. DULCOLAX [Concomitant]
     Dosage: 10 MG, QD
     Route: 048
  4. ERGOCALCIFEROL [Concomitant]
     Dosage: 50,000 IU Q WEEK
     Route: 048
  5. NEXIUM [Concomitant]
     Dosage: 40 MG, QD
     Route: 048
  6. FOLIC ACID [Concomitant]
     Dosage: 1 MG, QD
     Route: 048
  7. HYDROXYUREA [Concomitant]
     Dosage: 500 MG, QD
     Route: 048
  8. METOPROLOL TARTRATE [Concomitant]
     Dosage: 25 MG, QD
     Route: 048
  9. SENNA [Concomitant]
     Dosage: ONE TABLET BID
     Route: 048
  10. VICODIN [Concomitant]
     Indication: PAIN
     Dosage: 5/325 2 TABS Q6H PRN
     Route: 048
  11. FLEXERIL [Concomitant]
     Indication: PAIN
     Dosage: 5 MG Q8H PRN
     Route: 048
  12. SODIUM BICARBONATE [Concomitant]
     Dosage: 650 MG, BID
     Route: 048

REACTIONS (15)
  - CHEST PAIN [None]
  - CONSTIPATION [None]
  - DIASTOLIC DYSFUNCTION [None]
  - DYSPNOEA [None]
  - HAEMOLYSIS [None]
  - HYPERTENSION [None]
  - IRON OVERLOAD [None]
  - MENTAL STATUS CHANGES [None]
  - MUSCULOSKELETAL CHEST PAIN [None]
  - PAIN [None]
  - PULMONARY OEDEMA [None]
  - RENAL FAILURE ACUTE [None]
  - RENAL TUBULAR ACIDOSIS [None]
  - SICKLE CELL ANAEMIA WITH CRISIS [None]
  - SOMNOLENCE [None]
